FAERS Safety Report 15537266 (Version 1)
Quarter: 2018Q4

REPORT INFORMATION
  Report Type: Spontaneous
  Country: US (occurrence: US)
  Receive Date: 20181022
  Receipt Date: 20181022
  Transmission Date: 20190205
  Serious: Yes (Hospitalization, Other)
  Sender: FDA-Public Use
  Company Number: US-DSJP-DSU-2017-149306

PATIENT

DRUGS (1)
  1. BENICAR [Suspect]
     Active Substance: OLMESARTAN MEDOXOMIL
     Indication: PRODUCT USED FOR UNKNOWN INDICATION
     Dosage: 40 MG, UNK
     Dates: start: 20030101, end: 20170801

REACTIONS (8)
  - Haemorrhoids [Unknown]
  - Gastrooesophageal reflux disease [Unknown]
  - Colitis [Unknown]
  - Clostridium difficile colitis [Recovered/Resolved]
  - Diverticulitis [Unknown]
  - Diverticulum intestinal [Not Recovered/Not Resolved]
  - Irritable bowel syndrome [Recovering/Resolving]
  - Large intestine polyp [Recovered/Resolved]

NARRATIVE: CASE EVENT DATE: 201109
